FAERS Safety Report 17631873 (Version 1)
Quarter: 2020Q2

REPORT INFORMATION
  Report Type: Spontaneous
  Country: DE (occurrence: DE)
  Receive Date: 20200406
  Receipt Date: 20200406
  Transmission Date: 20200713
  Serious: Yes (Death, Other)
  Sender: FDA-Public Use
  Company Number: DE-JNJFOC-20200336355

PATIENT
  Age: 80 Year
  Sex: Male
  Weight: 89 kg

DRUGS (1)
  1. ZYTIGA [Suspect]
     Active Substance: ABIRATERONE ACETATE
     Indication: PROSTATE CANCER METASTATIC
     Dosage: 1000MG/D
     Route: 048
     Dates: start: 20180601, end: 20200128

REACTIONS (11)
  - Septic shock [Fatal]
  - Hepatic failure [Fatal]
  - Gait inability [Unknown]
  - Flank pain [Unknown]
  - Asthenia [Unknown]
  - Hepatic enzyme increased [Unknown]
  - Pyrexia [Unknown]
  - Abdominal pain upper [Unknown]
  - Chills [Unknown]
  - Jaundice [Unknown]
  - Renal failure [Fatal]

NARRATIVE: CASE EVENT DATE: 20200128
